FAERS Safety Report 8889937 (Version 2)
Quarter: 2014Q2

REPORT INFORMATION
  Report Type: Spontaneous
  Country: US (occurrence: US)
  Receive Date: 20121107
  Receipt Date: 20131024
  Transmission Date: 20141212
  Serious: Yes (Other)
  Sender: FDA-Public Use
  Company Number: US-PFIZER INC-HQWYE132627MAY04

PATIENT
  Age: 51 Year
  Sex: Female
  Weight: 72.5 kg

DRUGS (11)
  1. PREMPRO [Suspect]
     Indication: HORMONE REPLACEMENT THERAPY
     Dosage: UNK
     Route: 048
  2. PROVERA [Suspect]
     Indication: HORMONE REPLACEMENT THERAPY
     Dosage: 2.5 MG, PILLS UNK
     Route: 048
     Dates: start: 1993, end: 2000
  3. PREMARIN [Suspect]
     Indication: OESTROGEN REPLACEMENT THERAPY
     Dosage: 1.25 MG, UNK
     Route: 048
     Dates: start: 1997, end: 2000
  4. PREMARIN [Suspect]
     Indication: HORMONE REPLACEMENT THERAPY
  5. OGEN [Suspect]
     Indication: HORMONE REPLACEMENT THERAPY
     Dosage: UNK
     Route: 048
     Dates: start: 1993, end: 1994
  6. ESTROPIPATE [Suspect]
     Indication: HORMONE REPLACEMENT THERAPY
     Dosage: UNK
     Route: 048
  7. CYCRIN [Suspect]
     Indication: HORMONE REPLACEMENT THERAPY
     Dosage: UNK
     Route: 048
  8. ORTHO-EST [Suspect]
     Indication: OESTROGEN REPLACEMENT THERAPY
     Dosage: UNK
     Route: 048
     Dates: start: 1994, end: 1995
  9. ORTHO-EST [Suspect]
     Indication: HORMONE REPLACEMENT THERAPY
  10. ESTROPIPATE [Suspect]
     Indication: HORMONE REPLACEMENT THERAPY
     Dosage: UNK
     Route: 048
     Dates: start: 1995, end: 1997
  11. MEDROXYPROGESTERONE ACETATE [Suspect]
     Indication: HORMONE REPLACEMENT THERAPY
     Dosage: UNK
     Route: 048

REACTIONS (1)
  - Invasive lobular breast carcinoma [Unknown]
